FAERS Safety Report 15632259 (Version 1)
Quarter: 2018Q4

REPORT INFORMATION
  Report Type: Spontaneous
  Country: US (occurrence: US)
  Receive Date: 20181118
  Receipt Date: 20181118
  Transmission Date: 20190205
  Serious: Yes (Disabling, Other)
  Sender: FDA-Public Use
  Company Number: None

PATIENT
  Age: 39 Year
  Sex: Male
  Weight: 57.6 kg

DRUGS (5)
  1. DIAZEPAM. [Concomitant]
     Active Substance: DIAZEPAM
  2. NEFOPAM [Concomitant]
     Active Substance: NEFOPAM
  3. COCODAMOL [Concomitant]
     Active Substance: ACETAMINOPHEN\CODEINE PHOSPHATE
  4. NAPROXEN. [Concomitant]
     Active Substance: NAPROXEN
  5. METHADONE [Suspect]
     Active Substance: METHADONE HYDROCHLORIDE
     Indication: DRUG DEPENDENCE

REACTIONS (6)
  - Product packaging quantity issue [None]
  - Malaise [None]
  - Vomiting [None]
  - Product taste abnormal [None]
  - Product container issue [None]
  - Eructation [None]

NARRATIVE: CASE EVENT DATE: 20181118
